FAERS Safety Report 16098789 (Version 1)
Quarter: 2019Q1

REPORT INFORMATION
  Report Type: Report from Study
  Country: None (occurrence: CA)
  Receive Date: 20190321
  Receipt Date: 20190321
  Transmission Date: 20190418
  Serious: Yes (Other)
  Sender: FDA-Public Use
  Company Number: CA-ABBVIE-19K-028-2684970-00

PATIENT
  Sex: Male

DRUGS (1)
  1. HUMIRA [Suspect]
     Active Substance: ADALIMUMAB
     Indication: COLITIS ULCERATIVE
     Route: 058
     Dates: start: 20181212, end: 20190205

REACTIONS (9)
  - Faecaloma [Not Recovered/Not Resolved]
  - Large intestinal obstruction [Unknown]
  - Gastrointestinal disorder [Not Recovered/Not Resolved]
  - Frequent bowel movements [Not Recovered/Not Resolved]
  - Large intestinal haemorrhage [Unknown]
  - Fatigue [Unknown]
  - Gastrointestinal oedema [Unknown]
  - Insomnia [Unknown]
  - Gastrointestinal pain [Not Recovered/Not Resolved]
